FAERS Safety Report 25705076 (Version 2)
Quarter: 2025Q3

REPORT INFORMATION
  Report Type: Spontaneous
  Country: CA (occurrence: CA)
  Receive Date: 20250820
  Receipt Date: 20250914
  Transmission Date: 20251021
  Serious: Yes (Hospitalization, Other)
  Sender: GILEAD
  Company Number: CA-GILEAD-2025-0724319

PATIENT
  Age: 57 Year
  Sex: Female
  Weight: 48.4 kg

DRUGS (1)
  1. EPCLUSA [Suspect]
     Active Substance: SOFOSBUVIR\VELPATASVIR
     Indication: Hepatitis C
     Dosage: 1 TAB/DAY, PRESCRIBED 24 WEEKS EPC
     Route: 048
     Dates: start: 20250618, end: 20250809

REACTIONS (2)
  - Hepatitis acute [Recovered/Resolved]
  - Product use issue [Recovered/Resolved]

NARRATIVE: CASE EVENT DATE: 20250810
